FAERS Safety Report 4607839-8 (Version None)
Quarter: 2005Q1

REPORT INFORMATION
  Report Type: 
  Country: None (occurrence: None)
  Receive Date: 20050310
  Receipt Date: 20050223
  Transmission Date: 20050727
  Serious: Yes (Hospitalization, Disabling)
  Sender: FDA-Public Use
  Company Number: F01200500316

PATIENT
  Age: 72 Year
  Sex: Female

DRUGS (6)
  1. (OXALIPLATIN) - SOLUTION - 130 MG/M2  (CAPECITABINE) - TABLET - 1000 M [Suspect]
     Indication: COLORECTAL CANCER METASTATIC
     Dosage: 205 MG Q3W, INTRAVENOUS NOS
     Route: 042
     Dates: start: 20050111, end: 20050111
  2. (CAPECITABINE) - TABLET -1000 MG/M2 [Suspect]
     Dosage: 3300 ( 2 X 1000 MG/M2 PER DAY OF DAYS 1-15, Q3W), ORAL
     Route: 048
     Dates: start: 20050111, end: 20050125
  3. (CETUXIMAB) - SOLUTION - 400 MG [Suspect]
     Dosage: 400 MG 1/WEEK, INTRAVENOUS NOS
     Route: 042
     Dates: start: 20050125, end: 20050125
  4. GASTROSIL (METOCLOPRAMIDE HYDROCHORIDE) [Concomitant]
  5. IMODIUM [Concomitant]
  6. BELOC ZOC (METOPROLOL SUCCINATE) [Concomitant]

REACTIONS (4)
  - ASTHENIA [None]
  - DIZZINESS [None]
  - NEUROPATHY [None]
  - PARALYSIS [None]
